FAERS Safety Report 5463170-2 (Version None)
Quarter: 2007Q3

REPORT INFORMATION
  Report Type: 
  Country: None (occurrence: None)
  Receive Date: 20070920
  Receipt Date: 20070914
  Transmission Date: 20080115
  Serious: Yes (Congenital Anomaly)
  Sender: FDA-Public Use
  Company Number: A0648201A

PATIENT
  Sex: Female
  Weight: 1.4 kg

DRUGS (6)
  1. COMBIVIR [Suspect]
     Indication: HIV INFECTION
     Dosage: 2TAB PER DAY
     Dates: start: 20070322
  2. ATRIPLA [Concomitant]
     Dosage: 1U PER DAY
     Dates: start: 20061116, end: 20070228
  3. VIRACEPT [Concomitant]
     Dosage: 2500MG PER DAY
     Dates: start: 20070322
  4. ALCOHOL [Concomitant]
  5. TOBACCO [Concomitant]
  6. ZIDOVUDINE [Concomitant]
     Dates: start: 20070728, end: 20070729

REACTIONS (5)
  - CEREBRAL VENTRICLE DILATATION [None]
  - DRUG EXPOSURE DURING PREGNANCY [None]
  - HYDROCEPHALUS [None]
  - MENINGOMYELOCELE [None]
  - SPINA BIFIDA [None]
